FAERS Safety Report 8960999 (Version 1)
Quarter: 2012Q4

REPORT INFORMATION
  Report Type: 
  Country: GB (occurrence: GB)
  Receive Date: 20121212
  Receipt Date: 20121212
  Transmission Date: 20130627
  Serious: Yes (Other)
  Sender: FDA-Public Use
  Company Number: GB-MYLANLABS-2012S1024900

PATIENT
  Sex: Female

DRUGS (6)
  1. QUETIAPINE [Suspect]
     Indication: PRODUCT USED FOR UNKNOWN INDICATION
  2. DOMPERIDONE [Suspect]
     Indication: MALAISE
     Route: 048
  3. ANTACID /00018101/ [Concomitant]
     Indication: GASTROOESOPHAGEAL REFLUX DISEASE
  4. NITRAZEPAM [Concomitant]
     Indication: SLEEP DISORDER THERAPY
  5. PROZAC [Concomitant]
     Indication: DEPRESSION
  6. SOLPADOL [Concomitant]
     Indication: CANCER PAIN
     Dates: start: 201207

REACTIONS (2)
  - Anxiety [Unknown]
  - Sleep disorder [Unknown]
